FAERS Safety Report 17248254 (Version 1)
Quarter: 2020Q1

REPORT INFORMATION
  Report Type: Spontaneous
  Country: CA (occurrence: CA)
  Receive Date: 20200108
  Receipt Date: 20200108
  Transmission Date: 20200409
  Serious: Yes (Hospitalization)
  Sender: FDA-Public Use
  Company Number: CA-PFIZER INC-2020007103

PATIENT
  Age: 51 Year
  Sex: Female

DRUGS (1)
  1. XALKORI [Suspect]
     Active Substance: CRIZOTINIB
     Indication: NON-SMALL CELL LUNG CANCER
     Dosage: UNK
     Dates: start: 20191223

REACTIONS (5)
  - Pericardial effusion [Recovering/Resolving]
  - Thrombosis [Unknown]
  - Constipation [Unknown]
  - Diarrhoea [Unknown]
  - Pleural effusion [Recovering/Resolving]
